FAERS Safety Report 11152135 (Version 1)
Quarter: 2015Q2

REPORT INFORMATION
  Report Type: Report from Study
  Country: US (occurrence: US)
  Receive Date: 20150601
  Receipt Date: 20150601
  Transmission Date: 20150821
  Serious: Yes (Death)
  Sender: FDA-Public Use
  Company Number: US-ASTELLAS-2015US015799

PATIENT
  Sex: Female

DRUGS (1)
  1. ERLOTINIB [Suspect]
     Active Substance: ERLOTINIB
     Indication: BRAIN NEOPLASM MALIGNANT
     Dosage: UNK, UNKNOWN FREQ.
     Route: 048

REACTIONS (2)
  - Death [Fatal]
  - Off label use [Unknown]
